FAERS Safety Report 6818116-9 (Version None)
Quarter: 2010Q3

REPORT INFORMATION
  Report Type: 
  Country: None (occurrence: None)
  Receive Date: 20100706
  Receipt Date: 20100629
  Transmission Date: 20110219
  Serious: Yes (Other)
  Sender: FDA-Public Use
  Company Number: CHPA2010US10882

PATIENT
  Age: 75 Year
  Sex: Female
  Weight: 63.492 kg

DRUGS (4)
  1. EXCEDRIN (MIGRAINE) [Suspect]
     Indication: SPINAL COLUMN STENOSIS
     Dosage: 8 TALETS A DAY
     Route: 048
  2. EXCEDRIN (MIGRAINE) [Suspect]
     Dosage: 4 OR 6 TABLETS A DAY
  3. EXCEDRIN (MIGRAINE) [Suspect]
     Dosage: 8 TABLETS A DAY
     Route: 048
  4. EXCEDRIN (MIGRAINE) [Suspect]
     Dosage: 4 OR 6 TABLETS A DAY

REACTIONS (6)
  - BACK PAIN [None]
  - BODY HEIGHT DECREASED [None]
  - EPIDURAL ANAESTHESIA [None]
  - GAIT DISTURBANCE [None]
  - OFF LABEL USE [None]
  - THERAPEUTIC RESPONSE UNEXPECTED [None]
